FAERS Safety Report 26189704 (Version 1)
Quarter: 2025Q4

REPORT INFORMATION
  Report Type: Report from Study
  Country: ZA (occurrence: ZA)
  Receive Date: 20251223
  Receipt Date: 20251223
  Transmission Date: 20260118
  Serious: Yes (Other)
  Sender: ROCHE
  Company Number: ZA-ROCHE-10000024921

PATIENT
  Sex: Female

DRUGS (1)
  1. OCREVUS [Suspect]
     Active Substance: OCRELIZUMAB
     Indication: Relapsing-remitting multiple sclerosis
     Dosage: THEREAFTER 600MG EVERY 6 MONTHS?SUBSEQUENT DOSE: 14/AUG/2023, 300 MG
     Route: 041
     Dates: start: 20230730

REACTIONS (9)
  - Drug delivery device placement [Unknown]
  - Magnetic resonance imaging abnormal [Unknown]
  - Optic neuropathy [Unknown]
  - Multiple sclerosis [Unknown]
  - Vertebral osteophyte [Unknown]
  - Magnetic resonance imaging spinal abnormal [Unknown]
  - Magnetic resonance imaging head abnormal [Unknown]
  - Intervertebral disc protrusion [Unknown]
  - Dysphagia [Unknown]
